FAERS Safety Report 19778459 (Version 1)
Quarter: 2021Q3

REPORT INFORMATION
  Report Type: Spontaneous
  Country: US (occurrence: US)
  Receive Date: 20210831
  Receipt Date: 20210831
  Transmission Date: 20211014
  Serious: Yes (Hospitalization)
  Sender: FDA-Public Use
  Company Number: None

PATIENT
  Sex: Female

DRUGS (2)
  1. MAVENCLAD [Suspect]
     Active Substance: CLADRIBINE
     Indication: MULTIPLE SCLEROSIS
     Dosage: ?          OTHER DOSE:SEE EVENT;OTHER FREQUENCY:SEE EVENT; TAKE 1 TABLET DAILY BY MOUYH FOR 5 DAYS (CYCLE 2)?
     Route: 048
     Dates: start: 202001
  2. DALFAMPRIDINE ER 10MG AUROBINDO PHARMA [Suspect]
     Active Substance: DALFAMPRIDINE
     Indication: MULTIPLE SCLEROSIS
     Route: 048
     Dates: start: 20201125

REACTIONS (8)
  - Chest discomfort [None]
  - Dehydration [None]
  - Fatigue [None]
  - Apnoea [None]
  - Hypoaesthesia [None]
  - Gait disturbance [None]
  - Visual impairment [None]
  - Multiple sclerosis relapse [None]
